FAERS Safety Report 9940231 (Version 1)
Quarter: 2014Q1

REPORT INFORMATION
  Report Type: Spontaneous
  Country: US (occurrence: US)
  Receive Date: 20140303
  Receipt Date: 20140303
  Transmission Date: 20141002
  Serious: No
  Sender: FDA-Public Use
  Company Number: US-ABBVIE-13P-163-1036324-00

PATIENT
  Sex: Female

DRUGS (2)
  1. HUMIRA [Suspect]
     Indication: PSORIASIS
     Dates: start: 20121221
  2. HUMIRA [Suspect]

REACTIONS (2)
  - Injection site urticaria [Not Recovered/Not Resolved]
  - Rash pruritic [Recovering/Resolving]
